FAERS Safety Report 11747928 (Version 3)
Quarter: 2016Q1

REPORT INFORMATION
  Report Type: Spontaneous
  Country: US (occurrence: US)
  Receive Date: 20151117
  Receipt Date: 20160106
  Transmission Date: 20160525
  Serious: No
  Sender: FDA-Public Use
  Company Number: ALCN2015US007194

PATIENT
  Age: 74 Year
  Sex: Male
  Weight: 78.91 kg

DRUGS (1)
  1. PREDNISOLONE ACETATE. [Suspect]
     Active Substance: PREDNISOLONE ACETATE
     Indication: POSTOPERATIVE CARE
     Dosage: 2 GTT, TID
     Route: 047
     Dates: end: 20151117

REACTIONS (3)
  - Eye inflammation [Recovered/Resolved]
  - Medication residue present [Recovered/Resolved]
  - Foreign body sensation in eyes [Recovered/Resolved]

NARRATIVE: CASE EVENT DATE: 20151111
